FAERS Safety Report 14201338 (Version 1)
Quarter: 2017Q4

REPORT INFORMATION
  Report Type: Spontaneous
  Country: US (occurrence: US)
  Receive Date: 20171117
  Receipt Date: 20171117
  Transmission Date: 20180321
  Serious: No
  Sender: FDA-Public Use
  Company Number: US-PERRIGO-17US001864

PATIENT
  Age: 78 Year
  Sex: Female
  Weight: 86.17 kg

DRUGS (7)
  1. LOSARTAN. [Concomitant]
     Active Substance: LOSARTAN
     Indication: HYPERTENSION
     Dosage: 50MG
     Route: 065
  2. CHLORDIAZEPOXIDE. [Concomitant]
     Active Substance: CHLORDIAZEPOXIDE
     Indication: PANIC ATTACK
     Dosage: 10MG
     Route: 065
  3. CALCIUM [Concomitant]
     Active Substance: CALCIUM
     Indication: SUPPLEMENTATION THERAPY
     Dosage: 600MG
     Route: 065
  4. VITAMIN D                          /00107901/ [Concomitant]
     Active Substance: ERGOCALCIFEROL
     Indication: SUPPLEMENTATION THERAPY
     Dosage: 2000U
     Route: 065
  5. ASPIRIN                            /00002701/ [Concomitant]
     Active Substance: ASPIRIN
     Indication: PROPHYLAXIS
     Dosage: 162 MG, QD
     Route: 065
  6. POLYETHYLENE GLYCOL 3350. [Suspect]
     Active Substance: POLYETHYLENE GLYCOL 3350
     Indication: BOWEL PREPARATION
     Dosage: 238 G, SINGLE
     Route: 048
     Dates: start: 20170215, end: 20170215
  7. DULCOLAX (BISACODYL) [Concomitant]
     Active Substance: BISACODYL
     Indication: BOWEL PREPARATION
     Dosage: 4 TABS
     Route: 065
     Dates: start: 20170215, end: 20170215

REACTIONS (8)
  - Swollen tongue [Recovering/Resolving]
  - Off label use [Recovered/Resolved]
  - Nausea [Recovered/Resolved]
  - Hypersensitivity [Recovering/Resolving]
  - Bowel movement irregularity [Recovered/Resolved]
  - Overdose [Recovered/Resolved]
  - Lip swelling [Recovered/Resolved]
  - Tongue injury [Recovered/Resolved]

NARRATIVE: CASE EVENT DATE: 20170215
